FAERS Safety Report 5372655-9 (Version None)
Quarter: 2007Q2

REPORT INFORMATION
  Report Type: 
  Country: None (occurrence: None)
  Receive Date: 20070618
  Receipt Date: 20070430
  Transmission Date: 20071010
  Serious: Yes (Hospitalization, Other)
  Sender: FDA-Public Use
  Company Number: 07-000973

PATIENT
  Age: 34 Year
  Sex: Female
  Weight: 81.6 kg

DRUGS (1)
  1. LOESTRIN 24 FE [Suspect]
     Indication: CONTRACEPTION
     Dosage: 20/1000 UG, QD, ORAL
     Route: 048
     Dates: start: 20061101

REACTIONS (6)
  - CHOLECYSTITIS [None]
  - HYPOMENORRHOEA [None]
  - MENORRHAGIA [None]
  - METRORRHAGIA [None]
  - OEDEMA PERIPHERAL [None]
  - WEIGHT INCREASED [None]
